FAERS Safety Report 9504238 (Version 1)
Quarter: 2013Q3

REPORT INFORMATION
  Report Type: Spontaneous
  Country: JP (occurrence: JP)
  Receive Date: 20130906
  Receipt Date: 20130906
  Transmission Date: 20140515
  Serious: Yes (Death, Hospitalization)
  Sender: FDA-Public Use
  Company Number: JP-GLAXOSMITHKLINE-B0900581A

PATIENT
  Age: 63 Year
  Sex: Female

DRUGS (1)
  1. SAMTIREL [Suspect]
     Indication: ANTIFUNGAL PROPHYLAXIS
     Dosage: 1500MG PER DAY
     Route: 048
     Dates: start: 20130604, end: 20130613

REACTIONS (2)
  - Bronchopulmonary aspergillosis [Fatal]
  - Pyrexia [Not Recovered/Not Resolved]
